FAERS Safety Report 24901494 (Version 1)
Quarter: 2025Q1

REPORT INFORMATION
  Report Type: Spontaneous
  Country: US (occurrence: US)
  Receive Date: 20250129
  Receipt Date: 20250129
  Transmission Date: 20250408
  Serious: Yes (Other)
  Sender: ABBVIE
  Company Number: US-ABBVIE-6105205

PATIENT
  Age: 82 Year
  Sex: Female

DRUGS (2)
  1. PILOCARPINE [Suspect]
     Active Substance: PILOCARPINE
     Indication: Product used for unknown indication
     Route: 047
  2. LATANOPROST [Suspect]
     Active Substance: LATANOPROST
     Indication: Product used for unknown indication
     Dosage: ONCE A DAY AT NIGHT BEFORE BEDTIME 1 DROP IN RIGHT AND LEFT EYE
     Route: 047
     Dates: start: 202410

REACTIONS (3)
  - Surgery [Unknown]
  - Pruritus [Recovered/Resolved]
  - Rhinorrhoea [Unknown]

NARRATIVE: CASE EVENT DATE: 20240101
